FAERS Safety Report 16477399 (Version 1)
Quarter: 2019Q2

REPORT INFORMATION
  Report Type: Spontaneous
  Country: TH (occurrence: TH)
  Receive Date: 20190626
  Receipt Date: 20190626
  Transmission Date: 20190711
  Serious: Yes (Other)
  Sender: FDA-Public Use
  Company Number: PHHY2019TH143536

PATIENT
  Age: 32 Year
  Sex: Female
  Weight: 51 kg

DRUGS (5)
  1. DEFERIPRONE [Suspect]
     Active Substance: DEFERIPRONE
     Indication: IRON OVERLOAD
     Dosage: 1*3
     Route: 048
     Dates: start: 2012
  2. EXJADE [Suspect]
     Active Substance: DEFERASIROX
     Indication: THALASSAEMIA BETA
     Dosage: 35 MG/KG, QD
     Route: 065
  3. DEFERIPRONE [Suspect]
     Active Substance: DEFERIPRONE
     Dosage: 2*3(10/14)
     Route: 048
  4. DEFERIPRONE [Suspect]
     Active Substance: DEFERIPRONE
     Dosage: 100 MG/KG/D (10 TABS/DAY)
     Route: 065
  5. DEFERIPRONE [Suspect]
     Active Substance: DEFERIPRONE
     Dosage: 2-1-2(9/12)
     Route: 048

REACTIONS (1)
  - Hepatic cirrhosis [Unknown]
